FAERS Safety Report 6417825-3 (Version None)
Quarter: 2009Q4

REPORT INFORMATION
  Report Type: 
  Country: None (occurrence: None)
  Receive Date: 20091028
  Receipt Date: 20091023
  Transmission Date: 20100525
  Serious: Yes (Death)
  Sender: FDA-Public Use
  Company Number: AU-GENENTECH-292861

PATIENT
  Sex: Male

DRUGS (1)
  1. ACTIVASE [Suspect]
     Indication: THROMBOLYSIS
     Dosage: UNK

REACTIONS (1)
  - MYOCARDIAL INFARCTION [None]
